FAERS Safety Report 8499499-3 (Version None)
Quarter: 2012Q3

REPORT INFORMATION
  Report Type: 
  Country: None (occurrence: None)
  Receive Date: 20120710
  Receipt Date: 20120628
  Transmission Date: 20120928
  Serious: Yes (Hospitalization, Other)
  Sender: FDA-Public Use
  Company Number: CA-ELI_LILLY_AND_COMPANY-CA201206009574

PATIENT
  Age: 63 Year
  Sex: Male

DRUGS (10)
  1. AMLODIPINE [Concomitant]
  2. ATORVASTATIN [Concomitant]
  3. SPIRIVA [Concomitant]
  4. CALCIUM [Concomitant]
  5. VITAMIN D [Concomitant]
     Dosage: 10000 IU, UNK
  6. ADVAIR DISKUS 100/50 [Concomitant]
  7. LYRICA [Concomitant]
  8. ALBUTEROL SULATE [Concomitant]
  9. FORTEO [Suspect]
     Indication: OSTEOPOROSIS
     Dosage: 20 UG, QD
     Dates: start: 20120227
  10. HYDROCHLOROTHIAZIDE [Concomitant]

REACTIONS (3)
  - PNEUMONIA [None]
  - DEVICE MISUSE [None]
  - INTESTINAL OBSTRUCTION [None]
